FAERS Safety Report 6115757-1 (Version None)
Quarter: 2009Q1

REPORT INFORMATION
  Report Type: 
  Country: None (occurrence: None)
  Receive Date: 20090311
  Receipt Date: 20090303
  Transmission Date: 20090719
  Serious: Yes (Other)
  Sender: FDA-Public Use
  Company Number: A0760853A

PATIENT
  Age: 24 Month
  Sex: Male

DRUGS (1)
  1. CALCIUM CARBONATE (FORMULATION UNKNOWN) SUGAR FEE ORGANGE (CALCIUM CAR [Suspect]
     Dosage: SINGLE DOSE / TOPICAL
     Route: 061
     Dates: start: 20081216, end: 20081216

REACTIONS (6)
  - HAEMORRHAGE [None]
  - IRRITABILITY [None]
  - LACERATION [None]
  - LOCALISED INFECTION [None]
  - MALAISE [None]
  - PURULENCE [None]
